FAERS Safety Report 7363778-3 (Version None)
Quarter: 2011Q1

REPORT INFORMATION
  Report Type: 
  Country: None (occurrence: None)
  Receive Date: 20110321
  Receipt Date: 20110310
  Transmission Date: 20110831
  Serious: Yes (Hospitalization, Other)
  Sender: FDA-Public Use
  Company Number: US-ASTRAZENECA-2010SE20147

PATIENT
  Age: 50 Year
  Sex: Female

DRUGS (1)
  1. NEXIUM [Suspect]
     Route: 048

REACTIONS (15)
  - ACCIDENT AT WORK [None]
  - DRUG DOSE OMISSION [None]
  - VOMITING [None]
  - THERAPEUTIC RESPONSE UNEXPECTED [None]
  - WEIGHT DECREASED [None]
  - APHAGIA [None]
  - BACK DISORDER [None]
  - CERVICAL VERTEBRAL FRACTURE [None]
  - GASTRIC CANCER [None]
  - ROAD TRAFFIC ACCIDENT [None]
  - SURGERY [None]
  - ABDOMINAL PAIN UPPER [None]
  - CYST [None]
  - ABDOMINAL DISCOMFORT [None]
  - PAIN [None]
